FAERS Safety Report 4344394-4 (Version None)
Quarter: 2004Q2

REPORT INFORMATION
  Report Type: 
  Country: None (occurrence: None)
  Receive Date: 20040422
  Receipt Date: 20040420
  Transmission Date: 20050107
  Serious: Yes (Death)
  Sender: FDA-Public Use
  Company Number: DK-BRISTOL-MYERS SQUIBB COMPANY-12564423

PATIENT
  Age: 50 Year
  Sex: Female

DRUGS (5)
  1. ZERIT [Suspect]
     Indication: HIV INFECTION
     Route: 048
     Dates: end: 20040330
  2. VIDEX [Suspect]
     Indication: HIV INFECTION
     Route: 048
     Dates: end: 20040330
  3. EPIVIR [Suspect]
     Route: 048
     Dates: end: 20040330
  4. KALETRA [Suspect]
     Route: 048
     Dates: end: 20040330
  5. HEXASOPTIN [Concomitant]
     Route: 048
     Dates: end: 20040330

REACTIONS (2)
  - GASTROINTESTINAL HAEMORRHAGE [None]
  - LACTIC ACIDOSIS [None]
